FAERS Safety Report 10216428 (Version 1)
Quarter: 2014Q2

REPORT INFORMATION
  Report Type: Spontaneous
  Country: US (occurrence: US)
  Receive Date: 20140604
  Receipt Date: 20140604
  Transmission Date: 20141212
  Serious: No
  Sender: FDA-Public Use
  Company Number: US-BAYER-2014-083225

PATIENT
  Sex: Male

DRUGS (1)
  1. ALEVE TABLET [Suspect]
     Dosage: 3 DF, ONCE
     Route: 048
     Dates: start: 20140601

REACTIONS (2)
  - Drug screen positive [Unknown]
  - Inappropriate schedule of drug administration [Unknown]
